FAERS Safety Report 18969110 (Version 1)
Quarter: 2021Q1

REPORT INFORMATION
  Report Type: Spontaneous
  Country: CN (occurrence: CN)
  Receive Date: 20210304
  Receipt Date: 20210304
  Transmission Date: 20210420
  Serious: Yes (Other)
  Sender: FDA-Public Use
  Company Number: CN-PFIZER INC-2021218391

PATIENT
  Age: 3 Day
  Sex: Female
  Weight: 3.25 kg

DRUGS (2)
  1. GLUCOSE [Concomitant]
     Active Substance: DEXTROSE
     Indication: VEHICLE SOLUTION USE
     Dosage: 8.000 ML, 3X/DAY
     Route: 041
     Dates: start: 20200228, end: 20200302
  2. AMPICILLIN SODIUM/SULBACTAM SODIUM [Suspect]
     Active Substance: AMPICILLIN SODIUM\SULBACTAM SODIUM
     Indication: NEONATAL INFECTION
     Dosage: 0.16 G, 3X/DAY
     Route: 041
     Dates: start: 20200228, end: 20200302

REACTIONS (1)
  - Diarrhoea neonatal [Recovering/Resolving]

NARRATIVE: CASE EVENT DATE: 20200301
